FAERS Safety Report 5562660-1 (Version None)
Quarter: 2007Q4

REPORT INFORMATION
  Report Type: 
  Country: None (occurrence: None)
  Receive Date: 20071217
  Receipt Date: 20071213
  Transmission Date: 20080405
  Serious: Yes (Hospitalization)
  Sender: FDA-Public Use
  Company Number: FR-JNJFOC-20071203411

PATIENT
  Sex: Male

DRUGS (3)
  1. RISPERDAL [Suspect]
     Indication: HALLUCINATION
     Route: 048
  2. MODOPAR [Suspect]
     Route: 048
  3. MODOPAR [Suspect]
     Indication: DRUG USE FOR UNKNOWN INDICATION
     Dosage: MODOPAR 125: LEVODOPA 100MG, BENSERAZIDE 25MG
     Route: 048

REACTIONS (2)
  - COGNITIVE DISORDER [None]
  - DYSARTHRIA [None]
